FAERS Safety Report 17652671 (Version 14)
Quarter: 2024Q1

REPORT INFORMATION
  Report Type: Spontaneous
  Country: US (occurrence: US)
  Receive Date: 20200409
  Receipt Date: 20240223
  Transmission Date: 20240410
  Serious: Yes (Other)
  Sender: FDA-Public Use
  Company Number: US-PFIZER INC-2019298163

PATIENT
  Age: 65 Year
  Sex: Female
  Weight: 47.63 kg

DRUGS (8)
  1. PREMARIN [Suspect]
     Active Substance: ESTROGENS, CONJUGATED
     Indication: Dyspareunia
     Dosage: 0.5 G  2-3 TIMES PER WEEK
     Route: 067
  2. PREMARIN [Suspect]
     Active Substance: ESTROGENS, CONJUGATED
     Indication: Vulvovaginal dryness
     Dosage: APPLY SMALL AMOUNT AT BEDTIME X 14 DAYS THEN 2-3 X PER WEEK
  3. PREMARIN [Suspect]
     Active Substance: ESTROGENS, CONJUGATED
     Indication: Stress management
     Dosage: UNK
     Dates: start: 2018
  4. PREMARIN [Suspect]
     Active Substance: ESTROGENS, CONJUGATED
     Dosage: 0.5 G INTO THE VAGINA, 3 TIMES A WEEK
     Route: 067
     Dates: start: 20230215
  5. PREMARIN [Suspect]
     Active Substance: ESTROGENS, CONJUGATED
     Dosage: UNK, 3 TIMES A WEEK, MONDAY, WEDNESDAY AND FRIDAY
  6. DIAZEPAM [Concomitant]
     Active Substance: DIAZEPAM
     Indication: Stress
     Dosage: 10 MG, DAILY (5MG, 2 DAILY)
  7. SIMVASTATIN [Concomitant]
     Active Substance: SIMVASTATIN
     Indication: Blood cholesterol abnormal
     Dosage: 20 MG, DAILY
  8. FLONASE [Concomitant]
     Active Substance: FLUTICASONE PROPIONATE
     Indication: Scar
     Dosage: UNK, DAILY(1 SQUIRT DAILY IN BOTH NOSTRILS)
     Route: 045
     Dates: start: 2016

REACTIONS (10)
  - Fall [Unknown]
  - Femur fracture [Unknown]
  - Hip fracture [Unknown]
  - Nocturia [Unknown]
  - Sinusitis [Unknown]
  - Urine odour abnormal [Unknown]
  - Device delivery system issue [Unknown]
  - Urinary tract infection [Unknown]
  - Intentional product misuse [Unknown]
  - Off label use [Unknown]

NARRATIVE: CASE EVENT DATE: 20191201
